FAERS Safety Report 24984972 (Version 1)
Quarter: 2025Q1

REPORT INFORMATION
  Report Type: Spontaneous
  Country: GB (occurrence: GB)
  Receive Date: 20250219
  Receipt Date: 20250219
  Transmission Date: 20250408
  Serious: Yes (Other)
  Sender: ACCORD
  Company Number: None

PATIENT
  Age: 75 Year
  Sex: Female

DRUGS (17)
  1. SERTRALINE [Suspect]
     Active Substance: SERTRALINE HYDROCHLORIDE
     Indication: Product used for unknown indication
  2. CODEINE [Suspect]
     Active Substance: CODEINE
     Indication: Product used for unknown indication
  3. SPIRONOLACTONE [Concomitant]
     Active Substance: SPIRONOLACTONE
  4. RAMIPRIL [Concomitant]
     Active Substance: RAMIPRIL
  5. METFORMIN [Concomitant]
     Active Substance: METFORMIN HYDROCHLORIDE
  6. BUMETANIDE [Concomitant]
     Active Substance: BUMETANIDE
  7. POLYETHYLENE GLYCOLS [Concomitant]
     Active Substance: POLYETHYLENE GLYCOLS
  8. OMEPRAZOLE [Concomitant]
     Active Substance: OMEPRAZOLE
  9. ENSURE [Concomitant]
     Active Substance: AMINO ACIDS\DEXTROSE\ELECTROLYTES NOS\SOYBEAN OIL\VITAMINS
  10. NEBIVOLOL [Concomitant]
     Active Substance: NEBIVOLOL
  11. FERROUS FUMARATE [Concomitant]
     Active Substance: FERROUS FUMARATE
  12. BECLOMETASONE, FORMOTEROL, GLYCOPYRRONIUM [Concomitant]
  13. SODIUM ALGINATE W/SODIUM BICARBONAT [Concomitant]
  14. EDOXABAN [Concomitant]
     Active Substance: EDOXABAN
  15. ATORVASTATIN [Concomitant]
     Active Substance: ATORVASTATIN
  16. IVABRADINE HYDROCHLORIDE [Concomitant]
     Active Substance: IVABRADINE HYDROCHLORIDE
  17. ALBUTEROL [Concomitant]
     Active Substance: ALBUTEROL

REACTIONS (2)
  - Somnolence [Recovered/Resolved]
  - Coma scale abnormal [Unknown]
